FAERS Safety Report 13689548 (Version 2)
Quarter: 2017Q3

REPORT INFORMATION
  Report Type: Spontaneous
  Country: BR (occurrence: BR)
  Receive Date: 20170626
  Receipt Date: 20170711
  Transmission Date: 20171127
  Serious: Yes (Life-Threatening, Other)
  Sender: FDA-Public Use
  Company Number: PHHY2017BR090215

PATIENT
  Sex: Female
  Weight: 65 kg

DRUGS (3)
  1. DILACORON [Concomitant]
     Active Substance: VERAPAMIL HYDROCHLORIDE
     Indication: VASODILATATION
     Route: 065
  2. ENALAPRIL [Suspect]
     Active Substance: ENALAPRIL
     Indication: MITRAL VALVE PROLAPSE
     Dosage: 1 DF, QD
     Route: 048
  3. ENALAPRIL [Suspect]
     Active Substance: ENALAPRIL
     Indication: CHEST PAIN
     Dosage: 2 DF, UNK
     Route: 048

REACTIONS (7)
  - Dyspnoea [Unknown]
  - Osteoporosis [Unknown]
  - Chest pain [Unknown]
  - Dry mouth [Unknown]
  - Off label use [Unknown]
  - Memory impairment [Unknown]
  - Rheumatic disorder [Unknown]
